FAERS Safety Report 9315986 (Version 2)
Quarter: 2013Q2

REPORT INFORMATION
  Report Type: Spontaneous
  Country: HU (occurrence: HU)
  Receive Date: 20130530
  Receipt Date: 20130614
  Transmission Date: 20140414
  Serious: Yes (Hospitalization)
  Sender: FDA-Public Use
  Company Number: HU-BIOGENIDEC-2013BI047808

PATIENT
  Age: 38 Year
  Sex: Female

DRUGS (2)
  1. AVONEX [Suspect]
     Indication: MULTIPLE SCLEROSIS
     Route: 030
     Dates: start: 20121120
  2. ALGOZONE [Concomitant]
     Indication: PROPHYLAXIS
     Route: 048
     Dates: start: 20121120

REACTIONS (4)
  - Stress [Unknown]
  - Muscle spasms [Unknown]
  - Generalised anxiety disorder [Recovered/Resolved]
  - Transient psychosis [Recovered/Resolved]
